FAERS Safety Report 6320799-7 (Version None)
Quarter: 2009Q3

REPORT INFORMATION
  Report Type: 
  Country: None (occurrence: None)
  Receive Date: 20090822
  Receipt Date: 20081208
  Transmission Date: 20100115
  Serious: No
  Sender: FDA-Public Use
  Company Number: US-ABBOTT-08P-163-0492147-00

PATIENT
  Sex: Female
  Weight: 118.04 kg

DRUGS (8)
  1. NIASPAN [Suspect]
     Indication: BLOOD TRIGLYCERIDES INCREASED
     Dates: start: 20081204
  2. MONOPRIL [Concomitant]
     Indication: HYPERTENSION
  3. PREVACID [Concomitant]
     Indication: GASTROOESOPHAGEAL REFLUX DISEASE
  4. METFORMIN [Concomitant]
     Indication: DIABETES MELLITUS
  5. BYETTA [Concomitant]
     Indication: DIABETES MELLITUS
  6. ASPIRIN [Concomitant]
     Indication: ARTHRITIS
  7. ASPIRIN [Concomitant]
     Indication: PROPHYLAXIS
  8. ASPIRIN [Concomitant]
     Indication: ADVERSE DRUG REACTION

REACTIONS (3)
  - FLUSHING [None]
  - PAIN [None]
  - PRURITUS [None]
